FAERS Safety Report 11858754 (Version 2)
Quarter: 2016Q1

REPORT INFORMATION
  Report Type: Spontaneous
  Country: US (occurrence: US)
  Receive Date: 20151222
  Receipt Date: 20160107
  Transmission Date: 20160526
  Serious: Yes (Hospitalization)
  Sender: FDA-Public Use
  Company Number: US-AUROBINDO-AUR-APL-2015-11468

PATIENT
  Age: 60 Year
  Sex: Female

DRUGS (2)
  1. METRONIDAZOLE. [Suspect]
     Active Substance: METRONIDAZOLE
     Indication: OSTEOMYELITIS
     Dosage: UNK
     Route: 065
  2. METRONIDAZOLE. [Suspect]
     Active Substance: METRONIDAZOLE
     Indication: EXTRADURAL ABSCESS

REACTIONS (8)
  - Nystagmus [Recovered/Resolved]
  - Toxicity to various agents [Recovered/Resolved]
  - Language disorder [Recovered/Resolved]
  - Dysmetria [Recovered/Resolved]
  - Dysarthria [Recovered/Resolved]
  - Encephalopathy [Recovered/Resolved]
  - Mental status changes [Recovered/Resolved]
  - Clumsiness [Recovering/Resolving]
